FAERS Safety Report 9958806 (Version 1)
Quarter: 2014Q1

REPORT INFORMATION
  Report Type: Spontaneous
  Country: US (occurrence: None)
  Receive Date: 20140228
  Receipt Date: 20140228
  Transmission Date: 20141002
  Serious: No
  Sender: FDA-Public Use
  Company Number: None

PATIENT
  Age: 62 Year
  Sex: Female

DRUGS (1)
  1. DULOXETINE [Suspect]
     Route: 048
     Dates: start: 20140209

REACTIONS (2)
  - Hypersensitivity [None]
  - Product substitution issue [None]
